FAERS Safety Report 10173843 (Version 1)
Quarter: 2014Q2

REPORT INFORMATION
  Report Type: Spontaneous
  Country: US (occurrence: None)
  Receive Date: 20140513
  Receipt Date: 20140513
  Transmission Date: 20141212
  Serious: Yes (Other)
  Sender: FDA-Public Use
  Company Number: AUR-APL-2014-05419

PATIENT
  Age: 56 Year
  Sex: Male

DRUGS (28)
  1. ATENOLOL (ATENOLOL) [Suspect]
     Indication: PRODUCT USED FOR UNKNOWN INDICATION
  2. LISINOPRIL (LISINOPRIL) [Suspect]
     Indication: PRODUCT USED FOR UNKNOWN INDICATION
     Route: 048
     Dates: start: 20130923
  3. OMEPRAZOLE (OMEPRAZOLE) [Suspect]
     Indication: DYSPEPSIA
     Route: 048
  4. CETIRIZINE [Concomitant]
  5. CINNAMOMUM VERUM BARK [Concomitant]
  6. ASPIRIN (ACETYLSALICYLIC ACID) [Concomitant]
  7. OMEGA 3 (FISH OIL) [Concomitant]
  8. CO Q-10 (UBIDECARENONE) [Concomitant]
  9. CLONAZEPAM [Concomitant]
  10. ADVAIR DISKUS (SERETIDE) [Concomitant]
  11. ALBUTEROL SULFATE (SALBUTAMOL SULFATE) [Concomitant]
  12. TAMSULOSIN HYDROCHLORIDE [Concomitant]
  13. AZELASTINE [Concomitant]
  14. FLUTICASONE PROPIONATE [Concomitant]
  15. FLUOXETINE HYDROCHLORIDE [Concomitant]
  16. HUMALOG (INSULIN LISPRO) [Concomitant]
  17. GLIMEPIRIDE [Concomitant]
  18. TRADJENTA (LINAGLIPTIN) [Concomitant]
  19. LANTUS SOLOSTAR (INSULIN GLARGINE) [Concomitant]
  20. LYRICA (PREGABALIN) [Concomitant]
  21. RESTASIS (CICLOSPORIN) [Concomitant]
  22. HYDROCHLOROTHIAZIDE [Concomitant]
  23. LOVASTATIN [Concomitant]
  24. LOSARTAN POTASSIUM [Concomitant]
  25. FLUDROCORTISONE ACETATE [Concomitant]
  26. PROBIOTICA (LACTOBACILLUS REUTERI) [Concomitant]
  27. POTASSIUM CHLORIDE [Concomitant]
  28. ALGIN PROBIOTIC SUPPLEMENT (BROMPHENIRAMINE MALEATE) [Concomitant]

REACTIONS (29)
  - Off label use [None]
  - Type 2 diabetes mellitus [None]
  - Multiple system atrophy [None]
  - Diabetic retinopathy [None]
  - Ataxia [None]
  - Multiple system atrophy [None]
  - Carpal tunnel syndrome [None]
  - Cataract [None]
  - Diabetic neuropathy [None]
  - Hepatic steatosis [None]
  - Hypertension [None]
  - Obesity [None]
  - Neuropathy peripheral [None]
  - Social phobia [None]
  - Renal disorder [None]
  - Bruxism [None]
  - Oedema peripheral [None]
  - Blood cholesterol increased [None]
  - Hypotension [None]
  - Dyspepsia [None]
  - Nightmare [None]
  - Gastrooesophageal reflux disease [None]
  - Asthma [None]
  - Depression [None]
  - Hepatic enzyme increased [None]
  - Dyspepsia [None]
  - Dry eye [None]
  - Urinary retention [None]
  - Sleep apnoea syndrome [None]
